FAERS Safety Report 23370131 (Version 4)
Quarter: 2024Q2

REPORT INFORMATION
  Report Type: Spontaneous
  Country: US (occurrence: US)
  Receive Date: 20240105
  Receipt Date: 20240503
  Transmission Date: 20240716
  Serious: No
  Sender: FDA-Public Use
  Company Number: US-PFIZER INC-2020176049

PATIENT
  Age: 66 Year
  Sex: Female
  Weight: 64.86 kg

DRUGS (5)
  1. PREMARIN [Suspect]
     Active Substance: ESTROGENS, CONJUGATED
     Indication: Atrophic vulvovaginitis
     Dosage: 1 G, 2X/WEEK (APPLY ONE GRAM (1/2 APPLICATOR) AT NIGHT TWICE WEEKLY)
     Route: 067
  2. PREMARIN [Suspect]
     Active Substance: ESTROGENS, CONJUGATED
     Indication: Atrophic vulvovaginitis
     Dosage: 2 G, DAILY (PLACE 2 G VAGINALLY DAILY APPLY VAGINALLY NIGHTLY FOR 2 WEEKS)
     Route: 067
  3. PREMARIN [Suspect]
     Active Substance: ESTROGENS, CONJUGATED
     Indication: Genitourinary syndrome of menopause
     Dosage: 2 G, 2X/WEEK (2 TIMES PER WEEK THEREAFTER)
     Route: 067
  4. PREMARIN [Suspect]
     Active Substance: ESTROGENS, CONJUGATED
     Dosage: 2 G, 2X/WEEK (2 G VAGINALLY NIGHTLY 2 TIMES PER WEEK)
     Route: 067
     Dates: start: 20221017
  5. PREMARIN [Suspect]
     Active Substance: ESTROGENS, CONJUGATED
     Dosage: 2 G, 2X/WEEK (PLACE 2 G VAGINALLY NIGHTLY 2 TIMES PER WEEK)
     Route: 067
     Dates: start: 20221027

REACTIONS (6)
  - Off label use [Unknown]
  - Product prescribing issue [Unknown]
  - Nasopharyngitis [Recovering/Resolving]
  - Oropharyngeal pain [Recovering/Resolving]
  - Malaise [Recovering/Resolving]
  - Nasopharyngitis [Unknown]

NARRATIVE: CASE EVENT DATE: 20231225
